FAERS Safety Report 5288881-3 (Version None)
Quarter: 2007Q2

REPORT INFORMATION
  Report Type: 
  Country: None (occurrence: None)
  Receive Date: 20070405
  Receipt Date: 20070324
  Transmission Date: 20071010
  Serious: Yes (Other)
  Sender: FDA-Public Use
  Company Number: US-PFIZER INC-2006098765

PATIENT
  Sex: Female
  Weight: 66.2 kg

DRUGS (6)
  1. GEODON [Suspect]
     Indication: AGGRESSION
     Route: 065
  2. GEODON [Suspect]
     Indication: BIPOLAR DISORDER
  3. XANAX [Suspect]
     Indication: ANXIETY
     Route: 065
  4. ZYPREXA [Suspect]
     Indication: AGGRESSION
     Dosage: FREQ:UNKNOWN
     Route: 065
  5. TOPAMAX [Concomitant]
     Route: 065
  6. CELEXA [Concomitant]
     Route: 065

REACTIONS (12)
  - ABNORMAL BEHAVIOUR [None]
  - AGGRESSION [None]
  - BIPOLAR DISORDER [None]
  - DRUG INEFFECTIVE [None]
  - DRUG WITHDRAWAL SYNDROME [None]
  - EATING DISORDER [None]
  - HALLUCINATION [None]
  - INTERMITTENT EXPLOSIVE DISORDER [None]
  - OBSESSIVE-COMPULSIVE DISORDER [None]
  - SCHIZOPHRENIA, PARANOID TYPE [None]
  - UNEVALUABLE EVENT [None]
  - WEIGHT INCREASED [None]
